FAERS Safety Report 13159840 (Version 2)
Quarter: 2017Q1

REPORT INFORMATION
  Report Type: Report from Study
  Country: AR (occurrence: AR)
  Receive Date: 20170127
  Receipt Date: 20170214
  Transmission Date: 20170428
  Serious: Yes (Hospitalization)
  Sender: FDA-Public Use
  Company Number: PHHY2017AR011898

PATIENT
  Sex: Female

DRUGS (2)
  1. EXJADE [Suspect]
     Active Substance: DEFERASIROX
     Indication: IRON OVERLOAD
     Dosage: 750 MG, QD
     Route: 065
     Dates: start: 201501
  2. FOLIC ACID. [Concomitant]
     Active Substance: FOLIC ACID
     Indication: RED BLOOD CELL ABNORMALITY
     Dosage: ONE YEAR AGO
     Route: 065

REACTIONS (2)
  - Haemochromatosis [Unknown]
  - Urinary tract infection [Recovered/Resolved]
